FAERS Safety Report 8539345-2 (Version None)
Quarter: 2012Q3

REPORT INFORMATION
  Report Type: 
  Country: None (occurrence: None)
  Receive Date: 20120726
  Receipt Date: 20110803
  Transmission Date: 20120928
  Serious: No
  Sender: FDA-Public Use
  Company Number: US-ASTRAZENECA-2011SE44809

PATIENT
  Age: 48 Year
  Sex: Female

DRUGS (7)
  1. ZYPREXA [Concomitant]
  2. SEROQUEL [Suspect]
     Indication: SCHIZOAFFECTIVE DISORDER
     Route: 048
     Dates: end: 20090101
  3. ATIVAN [Concomitant]
  4. LEVOTHYINE [Concomitant]
  5. SEROQUEL [Suspect]
     Route: 048
  6. ATENOLOL [Concomitant]
  7. ESTRIGEN PATCH [Concomitant]

REACTIONS (6)
  - INSOMNIA [None]
  - FEELING ABNORMAL [None]
  - WRONG TECHNIQUE IN DRUG USAGE PROCESS [None]
  - DRUG DOSE OMISSION [None]
  - AGITATION [None]
  - HALLUCINATION [None]
